FAERS Safety Report 4363875-0 (Version None)
Quarter: 2004Q2

REPORT INFORMATION
  Report Type: 
  Country: None (occurrence: None)
  Receive Date: 20040519
  Receipt Date: 20040507
  Transmission Date: 20050107
  Serious: Yes (Hospitalization)
  Sender: FDA-Public Use
  Company Number: 2004AP02566

PATIENT
  Age: 85 Year
  Sex: Male

DRUGS (5)
  1. OMEPRAZOLE [Suspect]
     Dosage: 40 MG DAILY PO
     Route: 048
     Dates: start: 20030604, end: 20030610
  2. ASPIRIN [Suspect]
     Dosage: 150 MG DAILY PO
     Route: 048
     Dates: end: 20030608
  3. QUININE [Concomitant]
  4. GABAPENTIN [Concomitant]
  5. ACETAMINOPHEN [Concomitant]

REACTIONS (4)
  - DEHYDRATION [None]
  - DIARRHOEA [None]
  - RENAL FAILURE ACUTE [None]
  - VOMITING [None]
